FAERS Safety Report 25225480 (Version 1)
Quarter: 2025Q2

REPORT INFORMATION
  Report Type: Spontaneous
  Country: US (occurrence: None)
  Receive Date: 20250422
  Receipt Date: 20250422
  Transmission Date: 20250717
  Serious: Yes (Other)
  Sender: FDA-CTU
  Company Number: None

PATIENT
  Sex: Female

DRUGS (11)
  1. HUMIRA [Suspect]
     Active Substance: ADALIMUMAB
     Indication: Rheumatoid arthritis
     Route: 058
     Dates: start: 20200225
  2. AMITRIPTYLINE [Concomitant]
     Active Substance: AMITRIPTYLINE
  3. ARAVA [Concomitant]
     Active Substance: LEFLUNOMIDE
  4. ATORVASTATIN [Concomitant]
     Active Substance: ATORVASTATIN
  5. AZITHROMYCIN [Concomitant]
     Active Substance: AZITHROMYCIN
  6. BACLOFEN [Concomitant]
     Active Substance: BACLOFEN
  7. CEFUROXIME [Concomitant]
     Active Substance: CEFUROXIME
  8. CLOTRIM/BETA CRE [Concomitant]
  9. ESTRADIOL CREM [Concomitant]
  10. GABAPENTIN [Concomitant]
     Active Substance: GABAPENTIN
  11. HUMIRA [Concomitant]
     Active Substance: ADALIMUMAB

REACTIONS (5)
  - Loss of personal independence in daily activities [None]
  - Pain [None]
  - Therapy interrupted [None]
  - Drug interaction [None]
  - Therapeutic product effect decreased [None]
